FAERS Safety Report 7681253-3 (Version None)
Quarter: 2011Q3

REPORT INFORMATION
  Report Type: 
  Country: None (occurrence: None)
  Receive Date: 20110812
  Receipt Date: 20110622
  Transmission Date: 20111222
  Serious: Yes (Hospitalization, Other)
  Sender: FDA-Public Use
  Company Number: PHHY2011US55891

PATIENT
  Age: 44 Year
  Sex: Female

DRUGS (4)
  1. VIVELLE-DOT [Suspect]
     Dosage: 0.1 MG EVERY THREE DAYS
     Route: 062
     Dates: start: 20110518
  2. NYSTATIN [Suspect]
     Dosage: UNK UKN, UNK
  3. DIFLUCAN [Suspect]
     Dosage: UNK UKN, UNK
  4. BENADRYL [Suspect]
     Dosage: UNK UKN, UNK

REACTIONS (10)
  - BURNING SENSATION [None]
  - DRUG HYPERSENSITIVITY [None]
  - ORAL CANDIDIASIS [None]
  - APPLICATION SITE BURN [None]
  - FUNGAL INFECTION [None]
  - PHARYNGEAL OEDEMA [None]
  - SINUS DISORDER [None]
  - HYPERSENSITIVITY [None]
  - LIP SWELLING [None]
  - APPLICATION SITE SCAB [None]
